FAERS Safety Report 6132809-0 (Version None)
Quarter: 2009Q1

REPORT INFORMATION
  Report Type: 
  Country: None (occurrence: None)
  Receive Date: 20090325
  Receipt Date: 20090325
  Transmission Date: 20090719
  Serious: No
  Sender: FDA-Public Use
  Company Number: None

PATIENT
  Age: 54 Year
  Sex: Male

DRUGS (1)
  1. EFAVIRENZ/EMTRICITABINE/TENOFOVIR [Suspect]
     Indication: HIV INFECTION
     Dosage: 600 MG EVERY DAY PO
     Route: 048
     Dates: start: 20090224, end: 20090307

REACTIONS (1)
  - RASH [None]
